FAERS Safety Report 14531601 (Version 1)
Quarter: 2018Q1

REPORT INFORMATION
  Report Type: Spontaneous
  Country: US (occurrence: US)
  Receive Date: 20180213
  Receipt Date: 20180213
  Transmission Date: 20180509
  Serious: No
  Sender: FDA-Public Use
  Company Number: None

PATIENT
  Age: 33 Year
  Sex: Female

DRUGS (20)
  1. CHOLESTYRAM [Concomitant]
     Active Substance: CHOLESTYRAMINE
  2. CURCUMIN [Concomitant]
     Active Substance: CURCUMIN
  3. PROBIOTIC [Concomitant]
     Active Substance: PROBIOTICS NOS
  4. IMURAN [Concomitant]
     Active Substance: AZATHIOPRINE
  5. NASSALCROM [Concomitant]
  6. OCALIVA [Suspect]
     Active Substance: OBETICHOLIC ACID
     Indication: PRIMARY BILIARY CHOLANGITIS
     Route: 048
     Dates: start: 20170615
  7. DOXYCYCLINE. [Concomitant]
     Active Substance: DOXYCYCLINE
  8. MULTI VITAMIN [Concomitant]
     Active Substance: VITAMINS
  9. VITAMIN C [Concomitant]
     Active Substance: ASCORBIC ACID
  10. SPIRONACTOLONE [Concomitant]
  11. CLARITIN [Concomitant]
     Active Substance: LORATADINE
  12. AZASAN [Concomitant]
     Active Substance: AZATHIOPRINE
  13. PROAIR HFA [Concomitant]
     Active Substance: ALBUTEROL SULFATE
  14. TRIAMCINOLONE [Concomitant]
     Active Substance: TRIAMCINOLONE
  15. URSO FORTE [Concomitant]
     Active Substance: URSODIOL
  16. MUCINEX [Concomitant]
     Active Substance: GUAIFENESIN
  17. YASMI [Concomitant]
  18. METHYLFOL [Concomitant]
  19. AZATHIOPRINE. [Concomitant]
     Active Substance: AZATHIOPRINE
  20. URSODIOL. [Concomitant]
     Active Substance: URSODIOL

REACTIONS (1)
  - Pruritus [None]

NARRATIVE: CASE EVENT DATE: 201706
